FAERS Safety Report 6375896-7 (Version None)
Quarter: 2009Q3

REPORT INFORMATION
  Report Type: 
  Country: None (occurrence: None)
  Receive Date: 20090917
  Receipt Date: 20090904
  Transmission Date: 20100115
  Serious: Yes (Hospitalization)
  Sender: FDA-Public Use
  Company Number: ADR19342009

PATIENT
  Age: 44 Year
  Sex: Female

DRUGS (2)
  1. SALBUTAMOL (MFR: UNKNOWN) [Suspect]
     Indication: ASTHMA
     Dosage: 200 MG, ORAL
     Route: 048
  2. PREDNISOLONE 10 MG [Concomitant]

REACTIONS (12)
  - AGITATION [None]
  - BLOOD PRESSURE DECREASED [None]
  - CLONUS [None]
  - FEELING HOT [None]
  - HEART RATE DECREASED [None]
  - HYPERHIDROSIS [None]
  - HYPERREFLEXIA [None]
  - IRON DEFICIENCY ANAEMIA [None]
  - OVERDOSE [None]
  - PUPILLARY REFLEX IMPAIRED [None]
  - SINUS TACHYCARDIA [None]
  - VASODILATATION [None]
